FAERS Safety Report 7262110-3 (Version None)
Quarter: 2011Q1

REPORT INFORMATION
  Report Type: 
  Country: None (occurrence: None)
  Receive Date: 20110130
  Receipt Date: 20101201
  Transmission Date: 20110831
  Serious: No
  Sender: FDA-Public Use
  Company Number: US-ABBOTT-10P-163-0689118-00

PATIENT
  Sex: Male

DRUGS (3)
  1. ALEVE [Concomitant]
     Indication: PAIN
  2. HUMIRA [Suspect]
     Indication: PSORIASIS
     Route: 058
  3. HUMIRA [Suspect]
     Indication: PSORIATIC ARTHROPATHY

REACTIONS (2)
  - DERMATITIS PSORIASIFORM [None]
  - PYREXIA [None]
